FAERS Safety Report 9787770 (Version 4)
Quarter: 2014Q1

REPORT INFORMATION
  Report Type: Report from Study
  Country: US (occurrence: US)
  Receive Date: 20131230
  Receipt Date: 20140127
  Transmission Date: 20141002
  Serious: Yes (Hospitalization)
  Sender: FDA-Public Use
  Company Number: US-JNJFOC-20131209717

PATIENT
  Age: 49 Year
  Sex: Male
  Weight: 100.6 kg

DRUGS (18)
  1. USTEKINUMAB [Suspect]
     Route: 058
  2. USTEKINUMAB [Suspect]
     Indication: CROHN^S DISEASE
     Dosage: INTRAVENOUS OR SUBCUTANEOUS
     Route: 058
     Dates: start: 20120905
  3. DIOVAN [Concomitant]
     Indication: HYPERTENSION
     Route: 048
     Dates: start: 20121121
  4. CLOBETASOL PROPIONATE [Concomitant]
     Indication: PSORIASIS
     Route: 061
     Dates: start: 20120909
  5. AXIRON [Concomitant]
     Indication: BLOOD TESTOSTERONE DECREASED
     Route: 061
     Dates: start: 20120730
  6. AXIRON [Concomitant]
     Indication: NEPHROLITHIASIS
     Route: 061
     Dates: start: 20120730
  7. TRIAMCINOLONE [Concomitant]
     Indication: PSORIASIS
     Route: 061
     Dates: start: 20120613
  8. PROTONIX [Concomitant]
     Indication: CROHN^S DISEASE
     Route: 048
     Dates: start: 2010
  9. AMITRIPTYLINE [Concomitant]
     Indication: CROHN^S DISEASE
     Route: 048
     Dates: start: 2009
  10. LORTAB [Concomitant]
     Indication: CROHN^S DISEASE
     Route: 048
     Dates: start: 2000
  11. PROMETHAZINE [Concomitant]
     Indication: CROHN^S DISEASE
     Route: 048
     Dates: start: 2000
  12. VITAMIN B12 [Concomitant]
     Indication: CROHN^S DISEASE
     Route: 030
     Dates: start: 1992
  13. IBUPROFEN [Concomitant]
     Indication: PAIN
     Route: 048
     Dates: start: 20130408
  14. LEVSIN [Concomitant]
     Indication: ABDOMINAL PAIN
     Route: 060
     Dates: start: 20130524
  15. DIOVAN/HCTZ [Concomitant]
     Indication: BLOOD PRESSURE
     Route: 048
     Dates: start: 20130729
  16. BENTYL [Concomitant]
     Indication: MUSCLE SPASMS
     Route: 048
     Dates: start: 20130917
  17. BENTYL [Concomitant]
     Indication: ABDOMINAL PAIN
     Route: 048
     Dates: start: 20130917
  18. SOLU MEDROL [Concomitant]
     Indication: CROHN^S DISEASE
     Route: 042
     Dates: start: 20131124, end: 20131128

REACTIONS (1)
  - Vasculitis [Not Recovered/Not Resolved]
